FAERS Safety Report 18795084 (Version 1)
Quarter: 2021Q1

REPORT INFORMATION
  Report Type: Spontaneous
  Country: US (occurrence: US)
  Receive Date: 20210127
  Receipt Date: 20210127
  Transmission Date: 20210419
  Serious: No
  Sender: FDA-Public Use
  Company Number: US-MYLANLABS-2021M1003206

PATIENT
  Age: 77 Year
  Sex: Male

DRUGS (1)
  1. PROCTOFOAM HC [Suspect]
     Active Substance: HYDROCORTISONE ACETATE\PRAMOXINE HYDROCHLORIDE
     Indication: RADIATION INJURY
     Dosage: 1 PERCENT, 3XW
     Route: 054
     Dates: start: 20210111

REACTIONS (2)
  - Off label use [Not Recovered/Not Resolved]
  - Product leakage [Not Recovered/Not Resolved]

NARRATIVE: CASE EVENT DATE: 20210111
